FAERS Safety Report 15035183 (Version 4)
Quarter: 2020Q2

REPORT INFORMATION
  Report Type: Spontaneous
  Country: US (occurrence: US)
  Receive Date: 20180620
  Receipt Date: 20200601
  Transmission Date: 20200713
  Serious: Yes (Other)
  Sender: FDA-Public Use
  Company Number: US-PFIZER INC-2018248968

PATIENT
  Age: 82 Year
  Sex: Female

DRUGS (3)
  1. CEFDINIR. [Concomitant]
     Active Substance: CEFDINIR
     Indication: INFECTION
     Dosage: 300 MG, 2X/DAY
     Dates: start: 20180618, end: 20180628
  2. XELJANZ XR [Suspect]
     Active Substance: TOFACITINIB CITRATE
     Dosage: UNK
     Route: 048
  3. ACYCLOVIR. [Concomitant]
     Active Substance: ACYCLOVIR
     Indication: HERPES ZOSTER
     Dosage: 500 MG, 3X/DAY
     Dates: start: 20180621, end: 20180628

REACTIONS (7)
  - Sepsis [Recovering/Resolving]
  - Deep vein thrombosis [Recovering/Resolving]
  - Urinary tract infection [Unknown]
  - Condition aggravated [Unknown]
  - Blood potassium decreased [Unknown]
  - Dehydration [Unknown]
  - Hypokalaemia [Recovered/Resolved]
